FAERS Safety Report 6376131-6 (Version None)
Quarter: 2009Q3

REPORT INFORMATION
  Report Type: 
  Country: None (occurrence: None)
  Receive Date: 20090918
  Receipt Date: 20090907
  Transmission Date: 20100115
  Serious: Yes (Hospitalization)
  Sender: FDA-Public Use
  Company Number: 2009AL005905

PATIENT
  Age: 48 Year
  Sex: Female

DRUGS (4)
  1. EPIRUBICIN HCL [Suspect]
     Indication: BREAST CANCER
  2. PACLITAXEL [Concomitant]
  3. CYCLOPHOSPHAMIDE [Concomitant]
  4. GEMCITABINE [Concomitant]

REACTIONS (1)
  - MUSCULOSKELETAL PAIN [None]
